FAERS Safety Report 8478468 (Version 4)
Quarter: 2013Q1

REPORT INFORMATION
  Report Type: Spontaneous
  Country: US (occurrence: US)
  Receive Date: 20120327
  Receipt Date: 20130325
  Transmission Date: 20140127
  Serious: Yes (Hospitalization)
  Sender: FDA-Public Use
  Company Number: US-GLAXOSMITHKLINE-A0971055A

PATIENT
  Age: 73 Year
  Sex: Male
  Weight: 73 kg

DRUGS (16)
  1. MELPHALAN [Suspect]
     Indication: PLASMA CELL MYELOMA
     Dosage: 12MG CYCLIC
     Route: 048
     Dates: start: 20110418, end: 20120301
  2. VELCADE [Suspect]
     Indication: PLASMA CELL MYELOMA
     Dosage: 1.3MGM2 WEEKLY
     Route: 042
     Dates: start: 20110418, end: 20120301
  3. PREDNISONE [Suspect]
     Indication: PLASMA CELL MYELOMA
     Dosage: 100MG CYCLIC
     Route: 048
     Dates: start: 20110418, end: 20120301
  4. COMPAZINE [Concomitant]
     Indication: NAUSEA
     Dosage: 10MG SEE DOSAGE TEXT
     Route: 048
  5. ZOVIRAX [Concomitant]
     Dosage: 400MG PER DAY
  6. TOPROL XL [Concomitant]
     Dosage: 75MG PER DAY
  7. PHENERGAN [Concomitant]
     Indication: NAUSEA
     Dosage: 125MG SEE DOSAGE TEXT
  8. DILAUDID [Concomitant]
     Dosage: 2MG SEE DOSAGE TEXT
  9. MEGACE [Concomitant]
     Dosage: 10ML TWICE PER DAY
  10. MIRALAX [Concomitant]
     Dosage: 1PACK SEE DOSAGE TEXT
  11. PHILLIPS [Concomitant]
     Route: 048
  12. NORVASC [Concomitant]
     Dosage: 10MG PER DAY
     Route: 048
  13. AMBIEN [Concomitant]
     Indication: INSOMNIA
     Dosage: 10MG SEE DOSAGE TEXT
     Route: 048
  14. FLOMAX [Concomitant]
     Dosage: .4MG AT NIGHT
     Route: 048
  15. RENVELA [Concomitant]
     Dosage: 800MG THREE TIMES PER DAY
     Route: 048
  16. ZOCOR [Concomitant]
     Dosage: 40MG AT NIGHT
     Route: 048

REACTIONS (27)
  - Pneumonia [Unknown]
  - Malignant neoplasm progression [Unknown]
  - Pancreatitis [Unknown]
  - Pneumonitis [Unknown]
  - Atelectasis [Unknown]
  - Renal failure acute [Unknown]
  - Cellulitis [Unknown]
  - Abdominal pain upper [Recovered/Resolved]
  - Fluid overload [Recovered/Resolved]
  - Renal mass [Recovered/Resolved]
  - Renal disorder [Recovered/Resolved]
  - Biliary tract disorder [Unknown]
  - Inguinal hernia [Unknown]
  - Diverticulum [Unknown]
  - Chest X-ray abnormal [Unknown]
  - Hepatic mass [Unknown]
  - Renal cyst [Unknown]
  - Nuclear magnetic resonance imaging abnormal [Unknown]
  - Cholelithiasis [Unknown]
  - Lung consolidation [Unknown]
  - Non-cardiac chest pain [Unknown]
  - Dyspnoea [Unknown]
  - Chest discomfort [Unknown]
  - Blood culture positive [Unknown]
  - Asthenia [Unknown]
  - Pyrexia [Unknown]
  - Derealisation [Unknown]
